FAERS Safety Report 8837055 (Version 1)
Quarter: 2012Q4

REPORT INFORMATION
  Report Type: 
  Country: US (occurrence: US)
  Receive Date: 20121011
  Receipt Date: 20121011
  Transmission Date: 20130627
  Serious: Yes (Other)
  Sender: FDA-Public Use
  Company Number: CHPA2012US020704

PATIENT
  Age: 57 Year
  Sex: Female

DRUGS (3)
  1. CONTROL PLP [Suspect]
     Indication: SMOKING CESSATION THERAPY
     Dosage: 14 mg, QD
     Route: 062
     Dates: start: 201204
  2. LAMICTAL ^BURROUGHS WELLCOME^ [Concomitant]
     Indication: CONVULSION
     Dosage: Unk, Unk
  3. CLONAZEPAM [Concomitant]
     Indication: CONVULSION
     Dosage: Unk, Unk

REACTIONS (3)
  - Post procedural complication [Recovered/Resolved]
  - Pain [Recovered/Resolved]
  - Stress [Unknown]
